FAERS Safety Report 25765694 (Version 4)
Quarter: 2025Q4

REPORT INFORMATION
  Report Type: Report from Study
  Country: CO (occurrence: CO)
  Receive Date: 20250905
  Receipt Date: 20251104
  Transmission Date: 20260117
  Serious: Yes (Hospitalization, Other)
  Sender: TAKEDA
  Company Number: CO-TAKEDA-2025TUS077738

PATIENT
  Age: 90 Year
  Sex: Female
  Weight: 50 kg

DRUGS (1)
  1. VEDOLIZUMAB [Suspect]
     Active Substance: VEDOLIZUMAB
     Indication: Colitis ulcerative
     Dosage: 300 MILLIGRAM
     Dates: start: 20250110, end: 20251023

REACTIONS (2)
  - Sternal fracture [Unknown]
  - Fall [Unknown]

NARRATIVE: CASE EVENT DATE: 20250823
